FAERS Safety Report 10466721 (Version 4)
Quarter: 2016Q2

REPORT INFORMATION
  Report Type: Report from Study
  Country: KR (occurrence: KR)
  Receive Date: 20140922
  Receipt Date: 20160420
  Transmission Date: 20160815
  Serious: Yes (Hospitalization)
  Sender: FDA-Public Use
  Company Number: KR-ASTELLAS-2014JP020933AA

PATIENT
  Age: 71 Year
  Sex: Male

DRUGS (14)
  1. GLICLAZIDE [Concomitant]
     Active Substance: GLICLAZIDE
     Route: 048
     Dates: start: 20140904
  2. TAMIPOOL [Concomitant]
     Active Substance: VITAMINS
     Indication: VITAMIN SUPPLEMENTATION
     Route: 042
     Dates: start: 20140905, end: 20140909
  3. ONGLYZA [Concomitant]
     Active Substance: SAXAGLIPTIN HYDROCHLORIDE
     Indication: DIABETES MELLITUS
     Route: 048
  4. NOVALOPINE [Concomitant]
     Indication: HYPERTENSION
     Route: 048
     Dates: start: 20140404
  5. ENZALUTAMIDE [Suspect]
     Active Substance: ENZALUTAMIDE
     Indication: HORMONE-REFRACTORY PROSTATE CANCER
     Route: 048
     Dates: start: 20140418, end: 20141103
  6. BISACODYL. [Concomitant]
     Active Substance: BISACODYL
     Indication: CONSTIPATION
     Route: 054
     Dates: start: 20140911, end: 20140911
  7. TARGIN [Concomitant]
     Active Substance: NALOXONE HYDROCHLORIDE\OXYCODONE HYDROCHLORIDE
     Indication: PAIN
     Dosage: 1 DF (20/10 MG), ONCE DAILY
     Route: 048
     Dates: start: 20140903
  8. TRIAXON [Concomitant]
     Indication: PROPHYLAXIS
     Dosage: 1 DF (VIAL), ONCE DAILY
     Route: 042
     Dates: start: 20140921, end: 20140922
  9. ONGLYZA [Concomitant]
     Active Substance: SAXAGLIPTIN HYDROCHLORIDE
     Dosage: 1 DF (TABLET), ONCE DAILY
     Route: 048
     Dates: start: 20151024, end: 20151025
  10. TAMIPOOL [Concomitant]
     Active Substance: VITAMINS
     Dosage: 1 DF (VIAL), ONCE DAILY
     Route: 042
     Dates: start: 20141026
  11. BACTROBAN [Concomitant]
     Active Substance: MUPIROCIN\MUPIROCIN CALCIUM
     Indication: PROPHYLAXIS
     Dosage: 1 DF (TUB), ONCE DAILY
     Route: 062
     Dates: start: 20140906, end: 20140906
  12. GLICLAZIDE [Concomitant]
     Active Substance: GLICLAZIDE
     Indication: DIABETES MELLITUS
     Route: 048
     Dates: start: 20140904
  13. HINECHOL [Concomitant]
     Indication: PROPHYLAXIS
     Route: 048
  14. LYRICA [Concomitant]
     Active Substance: PREGABALIN
     Indication: PAIN
     Route: 048

REACTIONS (10)
  - Urine flow decreased [Recovered/Resolved]
  - Anaemia [Not Recovered/Not Resolved]
  - Bone pain [Recovered/Resolved]
  - Asthenia [Recovering/Resolving]
  - Hypoacusis [Recovered/Resolved]
  - Dyspepsia [Recovered/Resolved]
  - Neutropenia [Recovered/Resolved]
  - Neutropenia [Recovered/Resolved]
  - Pyrexia [Recovered/Resolved]
  - Decreased appetite [Recovering/Resolving]

NARRATIVE: CASE EVENT DATE: 20140613
